FAERS Safety Report 22397420 (Version 1)
Quarter: 2023Q2

REPORT INFORMATION
  Report Type: Spontaneous
  Country: FR (occurrence: None)
  Receive Date: 20230602
  Receipt Date: 20230602
  Transmission Date: 20230722
  Serious: Yes (Hospitalization)
  Sender: FDA-Public Use
  Company Number: 2023A090416

PATIENT
  Age: 41 Year
  Sex: Male
  Weight: 70 kg

DRUGS (9)
  1. QUETIAPINE [Suspect]
     Active Substance: QUETIAPINE
     Indication: Depression
     Dosage: 50 MG AT BEDTIME, 0-0-0-1 CP/JOUR
     Route: 048
     Dates: start: 20230406, end: 20230411
  2. SERTRALINE HYDROCHLORIDE [Suspect]
     Active Substance: SERTRALINE HYDROCHLORIDE
     Indication: Depression
     Route: 048
     Dates: start: 20230404, end: 20230417
  3. TEGRETOL [Suspect]
     Active Substance: CARBAMAZEPINE
     Indication: Seizure prophylaxis
     Dosage: 200 MG : 2 CP/JOUR
     Route: 048
     Dates: start: 20230404, end: 20230423
  4. VALIUM [Suspect]
     Active Substance: DIAZEPAM
     Indication: Product used for unknown indication
     Dosage: 30 DROPS IF NEEDED
     Route: 048
     Dates: start: 20230404, end: 20230417
  5. LOXAPINE [Suspect]
     Active Substance: LOXAPINE
     Indication: Agitation
     Dosage: 25 DROPS IN THE EVENING + 50-25-25 DROPS IN SOS,100 DROPS
     Route: 048
     Dates: start: 20230404, end: 20230417
  6. THIAMINE HYDROCHLORIDE [Concomitant]
     Active Substance: THIAMINE HYDROCHLORIDE
     Dosage: 250 MG X 2 /D
     Route: 048
     Dates: start: 20230404, end: 20230411
  7. OXAZEPAM [Concomitant]
     Active Substance: OXAZEPAM
     Dosage: 50 MG X 3
     Dates: start: 20230406, end: 20230412
  8. DAFALGAN [Concomitant]
     Active Substance: ACETAMINOPHEN
     Route: 048
     Dates: start: 20230409, end: 20230411
  9. LORMETAZEPAM [Concomitant]
     Active Substance: LORMETAZEPAM
     Dosage: 2 MG
     Route: 048
     Dates: start: 20230404, end: 20230411

REACTIONS (1)
  - Hepatic cytolysis [Recovering/Resolving]

NARRATIVE: CASE EVENT DATE: 20230411
